FAERS Safety Report 13545430 (Version 1)
Quarter: 2017Q2

REPORT INFORMATION
  Report Type: Spontaneous
  Country: US (occurrence: US)
  Receive Date: 20170513
  Receipt Date: 20170513
  Transmission Date: 20170830
  Serious: Yes (Other)
  Sender: FDA-Public Use
  Company Number: None

PATIENT
  Age: 39 Year
  Sex: Female
  Weight: 69.75 kg

DRUGS (4)
  1. LISINOPRIL. [Concomitant]
     Active Substance: LISINOPRIL
  2. NALTROXONE [Concomitant]
  3. SUBOXONE [Suspect]
     Active Substance: BUPRENORPHINE HYDROCHLORIDE\NALOXONE HYDROCHLORIDE
     Indication: PRODUCT USED FOR UNKNOWN INDICATION
     Dates: start: 20100820, end: 20160524
  4. PAXIL [Concomitant]
     Active Substance: PAROXETINE HYDROCHLORIDE

REACTIONS (10)
  - Heart rate irregular [None]
  - Depression [None]
  - Tachycardia [None]
  - Impaired gastric emptying [None]
  - Dental caries [None]
  - Amnesia [None]
  - Vision blurred [None]
  - Fatigue [None]
  - Hypertension [None]
  - Anxiety [None]

NARRATIVE: CASE EVENT DATE: 20150515
